FAERS Safety Report 10144219 (Version 1)
Quarter: 2014Q2

REPORT INFORMATION
  Report Type: Spontaneous
  Country: TH (occurrence: TH)
  Receive Date: 20140430
  Receipt Date: 20140430
  Transmission Date: 20141212
  Serious: Yes (Other)
  Sender: FDA-Public Use
  Company Number: PHHY2014TH049756

PATIENT
  Age: 32 Year
  Sex: Female

DRUGS (2)
  1. INDOMETHACIN [Suspect]
     Indication: TOCOLYSIS
  2. NIFEDIPINE [Suspect]
     Indication: PREMATURE LABOUR

REACTIONS (2)
  - Premature delivery [Unknown]
  - Maternal exposure during pregnancy [Unknown]
